FAERS Safety Report 7144859-6 (Version None)
Quarter: 2010Q4

REPORT INFORMATION
  Report Type: 
  Country: None (occurrence: None)
  Receive Date: 20101208
  Receipt Date: 20101021
  Transmission Date: 20110411
  Serious: Yes (Other)
  Sender: FDA-Public Use
  Company Number: AT-AMGEN-AUTNI2010001090

PATIENT

DRUGS (7)
  1. MIMPARA [Suspect]
     Indication: HYPERPARATHYROIDISM SECONDARY
     Dosage: 30 MG, UNK
     Route: 048
     Dates: start: 20100325, end: 20100608
  2. ARANESP [Suspect]
     Indication: ANAEMIA
     Dosage: 60 MG, QWK
     Dates: start: 20100420
  3. FUROSEMIDE [Concomitant]
     Indication: HYPERTENSION
     Dosage: 40 MG, UNK
     Route: 048
     Dates: start: 20100506
  4. DIOVAN [Concomitant]
     Indication: HYPERTENSION
     Dosage: 160 MG, UNK
     Route: 048
     Dates: start: 20100319
  5. VICARD [Concomitant]
     Indication: HYPERTENSION
     Dosage: 2 MG, UNK
     Dates: start: 20100428
  6. NOMEXOR [Concomitant]
     Indication: HYPERTENSION
     Dosage: 5 MG, UNK
     Dates: start: 20100428
  7. CALCIUM ACETATE [Concomitant]
     Indication: HYPERPHOSPHATAEMIA
     Dosage: 50 MG, UNK
     Dates: start: 20100310

REACTIONS (2)
  - HYPOAESTHESIA ORAL [None]
  - PARAESTHESIA [None]
